FAERS Safety Report 16074819 (Version 1)
Quarter: 2019Q1

REPORT INFORMATION
  Report Type: Spontaneous
  Country: US (occurrence: US)
  Receive Date: 20190314
  Receipt Date: 20190314
  Transmission Date: 20190418
  Serious: Yes (Other)
  Sender: FDA-Public Use
  Company Number: US-PFIZER INC-2019109953

PATIENT
  Age: 47 Year
  Sex: Male
  Weight: 88.9 kg

DRUGS (1)
  1. SUTENT [Suspect]
     Active Substance: SUNITINIB MALATE
     Dosage: 50 MG, DAILY
     Route: 048
     Dates: start: 20190207

REACTIONS (5)
  - Fatigue [Unknown]
  - Cough [Unknown]
  - Stomatitis [Unknown]
  - Butterfly rash [Unknown]
  - Pyrexia [Unknown]
